FAERS Safety Report 14522005 (Version 1)
Quarter: 2018Q1

REPORT INFORMATION
  Report Type: Spontaneous
  Country: US (occurrence: US)
  Receive Date: 20180212
  Receipt Date: 20180212
  Transmission Date: 20180509
  Serious: No
  Sender: FDA-Public Use
  Company Number: US-TAIHO ONCOLOGY INC-EU-2018-00161

PATIENT
  Age: 77 Year
  Sex: Female

DRUGS (1)
  1. LONSURF [Suspect]
     Active Substance: TIPIRACIL HYDROCHLORIDE\TRIFLURIDINE
     Indication: NEOPLASM MALIGNANT
     Route: 048
     Dates: start: 201801

REACTIONS (6)
  - Hypoaesthesia [Unknown]
  - Retinal disorder [Unknown]
  - Asthenia [Unknown]
  - Vision blurred [Unknown]
  - Cataract [Unknown]
  - Headache [Unknown]

NARRATIVE: CASE EVENT DATE: 201801
